FAERS Safety Report 6921795-9 (Version None)
Quarter: 2010Q3

REPORT INFORMATION
  Report Type: 
  Country: None (occurrence: None)
  Receive Date: 20100812
  Receipt Date: 20100804
  Transmission Date: 20110219
  Serious: Yes (Life-Threatening, Other)
  Sender: FDA-Public Use
  Company Number: JP-BRISTOL-MYERS SQUIBB COMPANY-15203003

PATIENT
  Age: 54 Year
  Sex: Female
  Weight: 76 kg

DRUGS (13)
  1. ABILIFY [Suspect]
     Indication: SCHIZOPHRENIA
     Dosage: 3MG:25DEC09TO11JAN10;12MG:12TO31JAN10;18MG:1TO7FEB10;24MG:8FEBTO25APR(77D);30MG:30APRTO11MAY10(12D)
     Route: 048
     Dates: start: 20091225, end: 20100511
  2. RISPERDAL [Concomitant]
  3. TASMOLIN [Concomitant]
  4. SENNA LEAF [Concomitant]
     Dosage: GRANULE
  5. SENNA PODS [Concomitant]
     Dosage: GRANULE
  6. LASIX [Concomitant]
  7. GLYBURIDE [Concomitant]
     Dosage: TABS
     Dates: start: 20090112
  8. HIBERNA [Concomitant]
     Dosage: TABS
     Dates: start: 20091123
  9. MEILAX [Concomitant]
     Dosage: TABS
     Dates: start: 20100412, end: 20100430
  10. GLYCYRRHIZA [Concomitant]
     Dosage: AM ( GLYCYRRHIZA POWDER COMBINED DRUG)
     Dates: start: 20060901
  11. TOCOPHEROL CONCENTRATE CAP [Concomitant]
     Dates: start: 20090708
  12. GASTER [Concomitant]
     Dosage: INJ
     Dates: start: 20100425, end: 20100430
  13. BENZALIN [Concomitant]
     Dates: start: 20100222

REACTIONS (2)
  - PNEUMONIA ASPIRATION [None]
  - WATER INTOXICATION [None]
